FAERS Safety Report 7964228-6 (Version None)
Quarter: 2011Q4

REPORT INFORMATION
  Report Type: 
  Country: None (occurrence: None)
  Receive Date: 20111208
  Receipt Date: 20111202
  Transmission Date: 20120403
  Serious: Yes (Hospitalization, Disabling)
  Sender: FDA-Public Use
  Company Number: JP-B.I. PHARMACEUTICALS,INC./RIDGEFIELD-2011-BP-24056NB

PATIENT
  Sex: Male
  Weight: 55.6 kg

DRUGS (15)
  1. SIGMART [Concomitant]
     Indication: MYOCARDIAL INFARCTION
     Dosage: 15 MG
     Route: 048
  2. OLMESARTAN MEDOXOMIL [Concomitant]
     Indication: HYPERTENSION
     Dosage: 40 MG
     Route: 048
  3. ADALAT [Concomitant]
     Indication: HYPERTENSION
     Dosage: 40 MG
     Route: 048
  4. SELBEX [Concomitant]
     Dosage: 1.5 MG
     Route: 048
  5. FAMOTIDINE [Concomitant]
     Dosage: 20 MG
     Route: 048
  6. ASTAZIS [Concomitant]
     Indication: EMPHYSEMA
     Dosage: 6 MG
     Route: 048
  7. LYZYME [Concomitant]
     Dosage: 3 MG
     Route: 048
  8. ASPIRIN [Concomitant]
     Indication: MYOCARDIAL INFARCTION
     Dosage: 100 MG
     Route: 048
     Dates: start: 20081008, end: 20110722
  9. TANATRIL [Concomitant]
     Indication: HYPERTENSION
     Dosage: 5 MG
     Route: 048
  10. LIPITOR [Concomitant]
     Indication: HYPERLIPIDAEMIA
     Dosage: 10 MG
     Route: 048
  11. KEJIFEN [Concomitant]
     Dosage: 30 MG
     Route: 048
  12. PRADAXA [Suspect]
     Indication: CARDIAC FAILURE CHRONIC
     Dosage: 220 MG
     Route: 048
     Dates: start: 20110601
  13. MINIPRESS [Concomitant]
     Indication: HYPERTENSION
     Dosage: 4 MG
     Route: 048
  14. BROMHEXINE [Concomitant]
     Indication: EMPHYSEMA
     Dosage: 24 MG
     Route: 048
  15. MEXITIL [Concomitant]
     Indication: MYOCARDIAL INFARCTION
     Dosage: 300 MG
     Route: 048

REACTIONS (2)
  - PUTAMEN HAEMORRHAGE [None]
  - PNEUMONIA ASPIRATION [None]
